FAERS Safety Report 17036847 (Version 1)
Quarter: 2019Q4

REPORT INFORMATION
  Report Type: Spontaneous
  Country: US (occurrence: US)
  Receive Date: 20191015
  Receipt Date: 20191015
  Transmission Date: 20200122
  Serious: Yes (Hospitalization)
  Sender: FDA-Public Use
  Company Number: None

PATIENT
  Age: 92 Year
  Sex: Male

DRUGS (1)
  1. GABAPENTIN. [Suspect]
     Active Substance: GABAPENTIN
     Indication: NEUROPATHY PERIPHERAL
     Route: 048
     Dates: start: 20190225, end: 20190301

REACTIONS (5)
  - Pain [None]
  - Vitamin B12 deficiency [None]
  - Fall [None]
  - Delirium [None]
  - Toxic encephalopathy [None]

NARRATIVE: CASE EVENT DATE: 20190228
